FAERS Safety Report 9010988 (Version 1)
Quarter: 2013Q1

REPORT INFORMATION
  Report Type: Spontaneous
  Country: US (occurrence: US)
  Receive Date: 20130109
  Receipt Date: 20130109
  Transmission Date: 20140127
  Serious: No
  Sender: FDA-Public Use
  Company Number: US-ASTRAZENECA-2012SE96143

PATIENT
  Age: 72 Year
  Sex: Female
  Weight: 60.3 kg

DRUGS (5)
  1. SYMBICORT  PMDI [Suspect]
     Indication: CHRONIC OBSTRUCTIVE PULMONARY DISEASE
     Dosage: 160/4.5, UNKNOWN
     Route: 055
  2. SYMBICORT  PMDI [Suspect]
     Indication: CHRONIC OBSTRUCTIVE PULMONARY DISEASE
     Dosage: 160/4.5 MCG BID
     Route: 055
     Dates: start: 20121220
  3. VALIUM [Concomitant]
     Indication: ANXIETY
     Dates: start: 2011
  4. TRIAZOLAM [Concomitant]
     Indication: SLEEP DISORDER
     Dosage: 0.125
     Dates: start: 2011
  5. VITAMINS [Concomitant]

REACTIONS (3)
  - Dyspnoea [Unknown]
  - Off label use [Unknown]
  - Drug ineffective [Unknown]
